FAERS Safety Report 6457540-3 (Version None)
Quarter: 2009Q4

REPORT INFORMATION
  Report Type: 
  Country: None (occurrence: None)
  Receive Date: 20091024
  Receipt Date: 20091109
  Transmission Date: 20100525
  Serious: Yes (Hospitalization)
  Sender: FDA-Public Use
  Company Number: 2009AC000248

PATIENT
  Age: 64 Year
  Sex: Male

DRUGS (20)
  1. DIGOXIN [Suspect]
     Indication: ARRHYTHMIA
     Dosage: 0.25 MG;QD;PO
     Route: 048
  2. PROTONIX [Concomitant]
  3. FOSAMAX [Concomitant]
  4. CELEXA [Concomitant]
  5. SIMVASTATIN [Concomitant]
  6. COREG [Concomitant]
  7. ASPIRIN [Concomitant]
  8. CALCIUM [Concomitant]
  9. FOLIC ACID [Concomitant]
  10. OMEGA [Concomitant]
  11. ZOCOR [Concomitant]
  12. NEURONTIN [Concomitant]
  13. ASPIRIN [Concomitant]
  14. ETODOLAC [Concomitant]
  15. COENZYME Q10 [Concomitant]
  16. VITAMIN D [Concomitant]
  17. VITAMIN B6 [Concomitant]
  18. VITAMIN B-12 [Concomitant]
  19. ASCORBIC ACID [Concomitant]
  20. FISH OIL [Concomitant]

REACTIONS (23)
  - ANAEMIA [None]
  - ANHEDONIA [None]
  - ANXIETY [None]
  - BRADYCARDIA [None]
  - CARDIAC DISORDER [None]
  - CARDIOACTIVE DRUG LEVEL INCREASED [None]
  - CHEST PAIN [None]
  - DIZZINESS [None]
  - ECONOMIC PROBLEM [None]
  - HYPONATRAEMIA [None]
  - HYPOTENSION [None]
  - ISCHAEMIC CARDIOMYOPATHY [None]
  - MULTIPLE INJURIES [None]
  - MUSCULOSKELETAL CHEST PAIN [None]
  - OSTEOPOROSIS [None]
  - PAIN [None]
  - POLLAKIURIA [None]
  - PROTEINURIA [None]
  - RENAL FAILURE ACUTE [None]
  - RHEUMATOID ARTHRITIS [None]
  - SHOULDER ARTHROPLASTY [None]
  - THERAPEUTIC AGENT TOXICITY [None]
  - UNEVALUABLE EVENT [None]
